FAERS Safety Report 8571335-6 (Version None)
Quarter: 2012Q3

REPORT INFORMATION
  Report Type: 
  Country: None (occurrence: None)
  Receive Date: 20120806
  Receipt Date: 20120727
  Transmission Date: 20120928
  Serious: Yes (Hospitalization)
  Sender: FDA-Public Use
  Company Number: PR-BAYER-2012-076747

PATIENT
  Age: 74 Year
  Sex: Male

DRUGS (1)
  1. NEXAVAR [Suspect]
     Indication: HEPATIC NEOPLASM MALIGNANT
     Dosage: 400 BID
     Route: 048
     Dates: start: 20120702

REACTIONS (4)
  - LUNG DISORDER [None]
  - FAECES DISCOLOURED [None]
  - PULMONARY THROMBOSIS [None]
  - RECTAL HAEMORRHAGE [None]
